FAERS Safety Report 6983478-9 (Version None)
Quarter: 2010Q3

REPORT INFORMATION
  Report Type: 
  Country: None (occurrence: None)
  Receive Date: 20100914
  Receipt Date: 20080723
  Transmission Date: 20110219
  Serious: No
  Sender: FDA-Public Use
  Company Number: US-WYE-H05265208

PATIENT
  Age: 43 Year
  Sex: Female
  Weight: 59.02 kg

DRUGS (2)
  1. ADVIL LIQUI-GELS [Suspect]
     Indication: PAIN IN EXTREMITY
     Dosage: 2 TABLETS AS NEEDED
     Route: 048
  2. ADVIL LIQUI-GELS [Suspect]
     Dosage: 2 TABLETS, THEN 3 MORE TABLETS APPROXIMATELY 3 AND 1/2 HOURS LATER
     Route: 048
     Dates: start: 20080723, end: 20080723

REACTIONS (2)
  - HEART RATE INCREASED [None]
  - INAPPROPRIATE SCHEDULE OF DRUG ADMINISTRATION [None]
